FAERS Safety Report 6413313-9 (Version None)
Quarter: 2009Q4

REPORT INFORMATION
  Report Type: 
  Country: None (occurrence: None)
  Receive Date: 20091022
  Receipt Date: 20091022
  Transmission Date: 20100525
  Serious: Yes (Other)
  Sender: FDA-Public Use
  Company Number: None

PATIENT
  Age: 9 Year
  Sex: Male

DRUGS (1)
  1. ETHOSUXIMIDE [Suspect]
     Indication: EPILEPSY
     Dosage: N/A

REACTIONS (4)
  - CONDITION AGGRAVATED [None]
  - CONVULSION [None]
  - POISONING [None]
  - PRODUCT SUBSTITUTION ISSUE [None]
